FAERS Safety Report 5211374-6 (Version None)
Quarter: 2007Q1

REPORT INFORMATION
  Report Type: 
  Country: None (occurrence: None)
  Receive Date: 20070112
  Receipt Date: 20070103
  Transmission Date: 20070707
  Serious: Yes (Hospitalization)
  Sender: FDA-Public Use
  Company Number: MEDI-0005144

PATIENT
  Age: 38 Year
  Sex: Male
  Weight: 91.173 kg

DRUGS (8)
  1. ETHYOL [Suspect]
     Indication: RADIOTHERAPY
     Dosage: DAILY BEFORE TREATMENT
     Dates: start: 20061017, end: 20061109
  2. RADIATION THERAPY [Concomitant]
  3. CISPLATIN [Concomitant]
  4. MANNITOL [Concomitant]
  5. RADIOSENSITIZER [Concomitant]
  6. ATIVAN [Concomitant]
  7. DECADRON [Concomitant]
  8. ZOFRAN [Concomitant]

REACTIONS (16)
  - DEHYDRATION [None]
  - ERYTHEMA [None]
  - HAEMATOCRIT DECREASED [None]
  - HAEMOGLOBIN DECREASED [None]
  - MALAISE [None]
  - NAUSEA [None]
  - ODYNOPHAGIA [None]
  - PAIN OF SKIN [None]
  - PETECHIAE [None]
  - PHARYNGOLARYNGEAL PAIN [None]
  - PYREXIA [None]
  - RASH [None]
  - SKIN BURNING SENSATION [None]
  - SKIN EXFOLIATION [None]
  - SKIN LESION [None]
  - VOMITING [None]
